FAERS Safety Report 23615861 (Version 1)
Quarter: 2024Q1

REPORT INFORMATION
  Report Type: Spontaneous
  Country: JP (occurrence: JP)
  Receive Date: 20240311
  Receipt Date: 20240311
  Transmission Date: 20240410
  Serious: Yes (Other)
  Sender: FDA-Public Use
  Company Number: JP-JNJFOC-20240327671

PATIENT
  Age: 35 Year
  Sex: Male

DRUGS (14)
  1. EDURANT [Suspect]
     Active Substance: RILPIVIRINE HYDROCHLORIDE
     Indication: HIV infection
     Route: 048
     Dates: start: 20230206, end: 20230303
  2. RILPIVIRINE [Suspect]
     Active Substance: RILPIVIRINE
     Indication: HIV infection
     Dosage: RIGHT GLUTEAL MUSCLE
     Route: 030
     Dates: start: 20230303, end: 20230303
  3. RILPIVIRINE [Suspect]
     Active Substance: RILPIVIRINE
     Dosage: RIGHT GLUTEAL MUSCLE
     Route: 030
     Dates: start: 20230529, end: 20230529
  4. VOCABRIA [Suspect]
     Active Substance: CABOTEGRAVIR SODIUM
     Indication: HIV infection
     Dosage: LEFT GLUTEAL MUSCLE
     Route: 030
     Dates: start: 20230303, end: 20230303
  5. VOCABRIA [Suspect]
     Active Substance: CABOTEGRAVIR SODIUM
     Indication: HIV infection
     Dosage: LEFT GLUTEAL MUSCLE
     Route: 030
     Dates: start: 20230529, end: 20230529
  6. VOCABRIA [Suspect]
     Active Substance: CABOTEGRAVIR SODIUM
     Indication: HIV infection
     Route: 048
     Dates: start: 20230206, end: 20230303
  7. DOVATO [Suspect]
     Active Substance: DOLUTEGRAVIR SODIUM\LAMIVUDINE
     Indication: HIV infection
     Route: 048
     Dates: start: 20230726
  8. XYZAL [Concomitant]
     Active Substance: LEVOCETIRIZINE DIHYDROCHLORIDE
     Indication: Seasonal allergy
     Dosage: DOSE UNKNOWN
     Route: 048
     Dates: start: 20230206, end: 20230505
  9. FLUTICASONE FUROATE [Concomitant]
     Active Substance: FLUTICASONE FUROATE
     Indication: Seasonal allergy
     Dosage: DOSE UNKNOWN
     Route: 045
     Dates: start: 20230206, end: 20230505
  10. TRIMEBUTINE [Concomitant]
     Active Substance: TRIMEBUTINE
     Indication: Gastroenteritis
     Dosage: DOSE UNKNOWN
     Route: 048
     Dates: start: 20231127, end: 20231203
  11. MIYA-BM [Concomitant]
     Active Substance: CLOSTRIDIUM BUTYRICUM SPORES STRAIN M-55
     Indication: Gastroenteritis
     Dosage: DOSE UNKNOWN
     Route: 048
     Dates: start: 20231127, end: 20231203
  12. ALLELOCK [Concomitant]
     Active Substance: OLOPATADINE HYDROCHLORIDE
     Indication: Urticaria
     Dosage: DOSE UNKNOWN
     Route: 048
     Dates: start: 20231227, end: 20240102
  13. CELESTAMINE [Concomitant]
     Active Substance: BETAMETHASONE\DEXCHLORPHENIRAMINE MALEATE
     Indication: Urticaria
     Dosage: DOSE UNKNOWN
     Route: 048
     Dates: start: 20231227, end: 20240102
  14. MYSER [DIFLUPREDNATE] [Concomitant]
     Indication: Urticaria
     Dosage: DOSE UNKNOWN
     Route: 061
     Dates: start: 20231227, end: 20240102

REACTIONS (4)
  - Monkeypox [Recovered/Resolved]
  - Injection site pain [Recovered/Resolved]
  - Gastroenteritis [Recovering/Resolving]
  - Urticaria [Recovering/Resolving]

NARRATIVE: CASE EVENT DATE: 20230303
